FAERS Safety Report 11356418 (Version 1)
Quarter: 2015Q3

REPORT INFORMATION
  Report Type: Spontaneous
  Country: IT (occurrence: IT)
  Receive Date: 20150807
  Receipt Date: 20150807
  Transmission Date: 20151125
  Serious: Yes (Death, Hospitalization)
  Sender: FDA-Public Use
  Company Number: IT-BAYER-2015-394689

PATIENT
  Age: 94 Year
  Sex: Male
  Weight: 90 kg

DRUGS (5)
  1. NITROGLYCERIN. [Concomitant]
     Active Substance: NITROGLYCERIN
     Dosage: DAILY DOSE 10 MG
     Route: 003
  2. CARVEDILOL. [Concomitant]
     Active Substance: CARVEDILOL
     Dosage: 6.25 MG, BID
     Route: 048
  3. AVODART [Concomitant]
     Active Substance: DUTASTERIDE
     Dosage: DAILY DOSE 1 DF
     Route: 048
  4. CARDIOASPIRIN [Suspect]
     Active Substance: ASPIRIN
     Indication: PROPHYLAXIS
     Dosage: DAILY DOSE 100 MG
     Route: 048
     Dates: start: 20070101, end: 20150527
  5. TAMSULOSIN HYDROCHLORIDE. [Concomitant]
     Active Substance: TAMSULOSIN HYDROCHLORIDE
     Dosage: DAILY DOSE 1 DF
     Route: 048

REACTIONS (2)
  - Cerebral haemorrhage [Fatal]
  - Altered state of consciousness [Fatal]

NARRATIVE: CASE EVENT DATE: 20150527
